FAERS Safety Report 6056980-4 (Version None)
Quarter: 2009Q1

REPORT INFORMATION
  Report Type: 
  Country: None (occurrence: None)
  Receive Date: 20090129
  Receipt Date: 20090121
  Transmission Date: 20090719
  Serious: Yes (Other)
  Sender: FDA-Public Use
  Company Number: US-JNJFOC-20090105466

PATIENT
  Sex: Male
  Weight: 93.9 kg

DRUGS (3)
  1. REMICADE [Suspect]
     Dosage: ^5MG^
     Route: 042
  2. REMICADE [Suspect]
     Dosage: ^5MG^
     Route: 042
  3. REMICADE [Suspect]
     Indication: COLITIS ULCERATIVE
     Dosage: ^5MG^
     Route: 042

REACTIONS (1)
  - RHABDOMYOLYSIS [None]
